FAERS Safety Report 10861232 (Version 1)
Quarter: 2015Q1

REPORT INFORMATION
  Report Type: Spontaneous
  Country: US (occurrence: None)
  Receive Date: 20150218
  Receipt Date: 20150218
  Transmission Date: 20150721
  Serious: No
  Sender: FDA-Public Use
  Company Number: None

PATIENT
  Age: 39 Year
  Sex: Female

DRUGS (1)
  1. PLUM-A PUMP [Suspect]
     Active Substance: DEVICE
     Indication: URINE OUTPUT DECREASED
     Dosage: NS 0.9% 1000 ML; 150ML/HR; IV-RIGHT HAND
     Dates: start: 20150119

REACTIONS (6)
  - Swelling [None]
  - Nail discolouration [None]
  - Skin discolouration [None]
  - Device alarm issue [None]
  - Infusion site extravasation [None]
  - Oedema peripheral [None]

NARRATIVE: CASE EVENT DATE: 20150119
